FAERS Safety Report 16784423 (Version 1)
Quarter: 2019Q3

REPORT INFORMATION
  Report Type: Spontaneous
  Country: CA (occurrence: CA)
  Receive Date: 20190909
  Receipt Date: 20190909
  Transmission Date: 20191005
  Serious: Yes (Other)
  Sender: FDA-Public Use
  Company Number: CA-REGENERON PHARMACEUTICALS, INC.-2019-52214

PATIENT

DRUGS (1)
  1. EYLEA [Suspect]
     Active Substance: AFLIBERCEPT
     Indication: NEOVASCULAR AGE-RELATED MACULAR DEGENERATION
     Dosage: 2 MG, ONCE
     Route: 031
     Dates: start: 20190828, end: 20190828

REACTIONS (3)
  - Vision blurred [Unknown]
  - Eye haemorrhage [Unknown]
  - Visual impairment [Unknown]

NARRATIVE: CASE EVENT DATE: 20190828
